FAERS Safety Report 7916691-4 (Version None)
Quarter: 2011Q4

REPORT INFORMATION
  Report Type: 
  Country: None (occurrence: None)
  Receive Date: 20111116
  Receipt Date: 20111105
  Transmission Date: 20120403
  Serious: Yes (Hospitalization, Other)
  Sender: FDA-Public Use
  Company Number: US-BAYER-201011838NA

PATIENT
  Age: 18 Year
  Sex: Female
  Weight: 52.154 kg

DRUGS (27)
  1. ORTHO-NOVUM [ETHINYLESTRADIOL,NORETHISTERONE] [Concomitant]
     Dosage: UNK
     Dates: start: 20080901
  2. ZOFRAN [Concomitant]
     Dosage: UNK
     Dates: start: 20080401
  3. PHENERGAN [Concomitant]
     Dosage: UNK
     Dates: start: 20080401
  4. DILAUDID [Concomitant]
     Dosage: UNK
     Dates: start: 20080601
  5. ANTIBIOTICS [Concomitant]
     Indication: PRODUCT USED FOR UNKNOWN INDICATION
     Dosage: UNK
     Dates: start: 20070101, end: 20080101
  6. FERROUS SULFATE TAB [Concomitant]
     Indication: PRODUCT USED FOR UNKNOWN INDICATION
  7. MICROGESTIN 1.5/30 [Concomitant]
     Indication: PRODUCT USED FOR UNKNOWN INDICATION
  8. FLAGYL [Concomitant]
  9. YAZ [Suspect]
     Indication: CONTRACEPTION
     Dosage: UNK
     Route: 048
     Dates: start: 20050101, end: 20090101
  10. AMOXICILLIN AND CLAVULANATE POTASSIUM [Concomitant]
     Indication: PRODUCT USED FOR UNKNOWN INDICATION
  11. UNASYN [Concomitant]
     Dosage: UNK
     Dates: start: 20080401
  12. PEPCID [Concomitant]
     Dosage: UNK
     Dates: start: 20080601
  13. AUGMENTIN [Concomitant]
     Dosage: UNK
     Dates: start: 20080601
  14. IRON [FERROUS SULFATE] [Concomitant]
     Dosage: UNK
     Dates: start: 20080601
  15. YASMIN [Suspect]
     Indication: CONTRACEPTION
     Dosage: UNK
     Route: 048
     Dates: start: 20050101, end: 20090101
  16. ORTHO TRI-CYCLEN [Concomitant]
     Dosage: UNK
     Dates: start: 20080401
  17. OXYCODONE HCL [Concomitant]
     Indication: PRODUCT USED FOR UNKNOWN INDICATION
  18. ALPRAZOLAM [Concomitant]
     Indication: PRODUCT USED FOR UNKNOWN INDICATION
  19. MORPHINE [Concomitant]
     Dosage: UNK
     Dates: start: 20080401
  20. DROSPIRENONE AND ETHINYL ESTRADIOL [Suspect]
     Indication: CONTRACEPTION
     Dosage: UNK
     Route: 048
     Dates: start: 20050101, end: 20090101
  21. VICODIN [Concomitant]
     Dosage: UNK
     Dates: start: 20080601
  22. HYDROCODONE BITARTRATE [Concomitant]
     Indication: PRODUCT USED FOR UNKNOWN INDICATION
  23. PONSTEL [Concomitant]
     Indication: PRODUCT USED FOR UNKNOWN INDICATION
  24. PITOCIN [Concomitant]
     Dosage: UNK
     Dates: start: 20080401
  25. DEMEROL [Concomitant]
     Dosage: UNK
     Dates: start: 20080401
  26. RHOGAM [Concomitant]
     Dosage: UNK
     Dates: start: 20080401
  27. ACETAMINOPHEN [Concomitant]
     Dosage: UNK
     Dates: start: 20080401

REACTIONS (7)
  - SYNCOPE [None]
  - CHOLECYSTITIS [None]
  - HEART RATE IRREGULAR [None]
  - ARRHYTHMIA [None]
  - CHOLELITHIASIS [None]
  - ELECTROLYTE IMBALANCE [None]
  - SUPRAVENTRICULAR TACHYCARDIA [None]
